FAERS Safety Report 9184571 (Version 1)
Quarter: 2013Q1

REPORT INFORMATION
  Report Type: Spontaneous
  Country: ES (occurrence: ES)
  Receive Date: 20130322
  Receipt Date: 20130322
  Transmission Date: 20140127
  Serious: Yes (Hospitalization, Other)
  Sender: FDA-Public Use
  Company Number: ES-ELI_LILLY_AND_COMPANY-ES201303006943

PATIENT
  Age: 71 Year
  Sex: Female

DRUGS (8)
  1. FORSTEO [Suspect]
     Indication: OSTEOPOROSIS
     Dosage: 20 UG, UNKNOWN
     Route: 058
     Dates: start: 200809, end: 20081022
  2. INSULIN [Concomitant]
     Indication: DIABETES MELLITUS
     Dosage: UNK, UNKNOWN
     Route: 065
  3. ENALAPRIL [Concomitant]
     Dosage: UNK, UNKNOWN
     Route: 065
  4. DOBUPAL [Concomitant]
     Dosage: UNK, UNKNOWN
     Route: 065
  5. FERROGRADUMET [Concomitant]
     Dosage: UNK, UNKNOWN
     Route: 065
  6. LEXATIN [Concomitant]
     Dosage: UNK, UNKNOWN
     Route: 065
  7. CALCIUM [Concomitant]
     Dosage: UNK, UNKNOWN
     Route: 065
  8. DACORTIN [Concomitant]
     Dosage: UNK, UNKNOWN
     Route: 065

REACTIONS (12)
  - Mitral valve stenosis [Unknown]
  - Mitral valve incompetence [Unknown]
  - Cardiac failure [Recovering/Resolving]
  - Lung infection [Recovering/Resolving]
  - Pulmonary oedema [Unknown]
  - Dyspnoea [Unknown]
  - Gastrointestinal haemorrhage [Unknown]
  - Systemic lupus erythematosus [Unknown]
  - Haemorrhoids [Unknown]
  - Anaemia [Unknown]
  - Blood pressure decreased [Unknown]
  - Tachycardia [Unknown]
